FAERS Safety Report 24064230 (Version 2)
Quarter: 2024Q3

REPORT INFORMATION
  Report Type: Spontaneous
  Country: US (occurrence: US)
  Receive Date: 20240709
  Receipt Date: 20240726
  Transmission Date: 20241017
  Serious: Yes (Life-Threatening, Hospitalization)
  Sender: TEVA
  Company Number: US-TEVA-VS-3218564

PATIENT
  Age: 25 Year
  Sex: Female

DRUGS (1)
  1. PROPRANOLOL [Suspect]
     Active Substance: PROPRANOLOL HYDROCHLORIDE
     Indication: Essential tremor
     Route: 065

REACTIONS (7)
  - Hypotension [Recovering/Resolving]
  - Electrocardiogram QRS complex prolonged [Recovering/Resolving]
  - Seizure [Recovering/Resolving]
  - Intentional overdose [Unknown]
  - Electrocardiogram QT prolonged [Recovering/Resolving]
  - Left ventricular dysfunction [Recovered/Resolved]
  - Mental impairment [Recovering/Resolving]
